FAERS Safety Report 10153398 (Version 1)
Quarter: 2014Q2

REPORT INFORMATION
  Report Type: Spontaneous
  Country: US (occurrence: US)
  Receive Date: 20140505
  Receipt Date: 20140505
  Transmission Date: 20141212
  Serious: No
  Sender: FDA-Public Use
  Company Number: US-ASTRAZENECA-2013SE66492

PATIENT
  Age: 81 Year
  Sex: Female

DRUGS (7)
  1. OMEPRAZOLE [Suspect]
     Route: 048
  2. BLOOD PRESSURE MEDICATION [Concomitant]
     Indication: BLOOD PRESSURE ABNORMAL
  3. WARFARIN [Concomitant]
  4. POTASSIUM [Concomitant]
  5. MAGNESIUM [Concomitant]
  6. MULTIVITAMIN [Concomitant]
  7. LASIX [Concomitant]
     Indication: FLUID RETENTION

REACTIONS (2)
  - Coeliac disease [Unknown]
  - Diarrhoea [Unknown]
